FAERS Safety Report 8411941-2 (Version None)
Quarter: 2012Q2

REPORT INFORMATION
  Report Type: 
  Country: None (occurrence: None)
  Receive Date: 20120605
  Receipt Date: 20120516
  Transmission Date: 20120825
  Serious: No
  Sender: FDA-Public Use
  Company Number: US-AMGEN-USASP2012031007

PATIENT
  Age: 58 Year
  Sex: Female

DRUGS (1)
  1. ENBREL [Suspect]
     Indication: RHEUMATOID ARTHRITIS
     Dosage: 50 MG, QWK
     Dates: start: 20120201, end: 20120503

REACTIONS (6)
  - SINUS DISORDER [None]
  - INJECTION SITE URTICARIA [None]
  - INJECTION SITE SCAR [None]
  - EYE IRRITATION [None]
  - HEADACHE [None]
  - INJECTION SITE PRURITUS [None]
